FAERS Safety Report 5078790-7 (Version None)
Quarter: 2006Q3

REPORT INFORMATION
  Report Type: 
  Country: None (occurrence: None)
  Receive Date: 20060809
  Receipt Date: 20060802
  Transmission Date: 20061208
  Serious: Yes (Death, Other)
  Sender: FDA-Public Use
  Company Number: HQWYE846203AUG06

PATIENT
  Age: 58 Year
  Sex: Female

DRUGS (4)
  1. PREMPRO [Suspect]
     Indication: MENOPAUSAL SYMPTOMS
  2. ESTRACE [Suspect]
     Indication: MENOPAUSAL SYMPTOMS
  3. PREMARIN [Suspect]
     Indication: MENOPAUSAL SYMPTOMS
  4. PROVERA [Suspect]
     Indication: MENOPAUSAL SYMPTOMS

REACTIONS (4)
  - BREAST CANCER METASTATIC [None]
  - METASTASES TO BONE [None]
  - OESTROGEN RECEPTOR ASSAY POSITIVE [None]
  - PROGESTERONE RECEPTOR ASSAY POSITIVE [None]
